FAERS Safety Report 16175751 (Version 2)
Quarter: 2019Q4

REPORT INFORMATION
  Report Type: Spontaneous
  Country: PL (occurrence: PL)
  Receive Date: 20190409
  Receipt Date: 20191030
  Transmission Date: 20200122
  Serious: Yes (Death, Hospitalization, Disabling, Other)
  Sender: FDA-Public Use
  Company Number: PL-NAPPMUNDI-GBR-2019-0065684

PATIENT
  Age: 64 Year
  Sex: Female

DRUGS (11)
  1. AMITRIPTYLINE [Interacting]
     Active Substance: AMITRIPTYLINE
     Indication: NEURALGIA
  2. HEPARIN [Suspect]
     Active Substance: HEPARIN SODIUM
     Indication: CERVIX CARCINOMA
     Dosage: UNK (AT A PROPHYLACTIC DOSE)
     Route: 065
  3. AMITRIPTYLINE [Interacting]
     Active Substance: AMITRIPTYLINE
     Indication: ANALGESIC THERAPY
     Dosage: 150 MG, QD (3 X 50 G)
     Route: 065
  4. OLANZAPINE. [Interacting]
     Active Substance: OLANZAPINE
     Indication: INITIAL INSOMNIA
     Dosage: 10 MG (TAKEN BEFORE GOING TO SLEEP)
     Route: 065
  5. FUROSEMIDE. [Interacting]
     Active Substance: FUROSEMIDE
     Indication: CERVIX CARCINOMA
     Dosage: PERIODICALLY, DOSE WAS INCREASED TO 60 MG/D
     Route: 065
  6. FLUCONAZOLE. [Interacting]
     Active Substance: FLUCONAZOLE
     Indication: FUNGAL INFECTION
     Dosage: 200 MG, QD
     Route: 048
  7. MORPHINE SULFATE. [Interacting]
     Active Substance: MORPHINE SULFATE
     Indication: PAIN
  8. OLANZAPINE. [Interacting]
     Active Substance: OLANZAPINE
     Indication: NAUSEA
  9. DALTEPARIN SODIUM [Concomitant]
     Active Substance: DALTEPARIN SODIUM
     Dosage: UNK (HEPARIN LOW MOLECULAR WEIGHT)
  10. MORPHINE SULFATE. [Suspect]
     Active Substance: MORPHINE SULFATE
     Indication: NEURALGIA
     Dosage: 240 MG, DAILY
     Route: 048
  11. POTASSIUM [Suspect]
     Active Substance: POTASSIUM
     Indication: CERVIX CARCINOMA
     Dosage: UNK
     Route: 065

REACTIONS (16)
  - Swelling [Fatal]
  - Cyanosis [Fatal]
  - Chest pain [Fatal]
  - Cough [Fatal]
  - Oedema peripheral [Fatal]
  - Nausea [Recovered/Resolved]
  - Dyspnoea [Fatal]
  - Confusional state [Fatal]
  - Haemoptysis [Fatal]
  - Insomnia [Recovering/Resolving]
  - Drug interaction [Fatal]
  - Somnolence [Fatal]
  - Somnolence [Not Recovered/Not Resolved]
  - Pulmonary embolism [Fatal]
  - Cardiac arrest [Fatal]
  - Cardio-respiratory arrest [Fatal]
